FAERS Safety Report 7410992-4 (Version None)
Quarter: 2011Q2

REPORT INFORMATION
  Report Type: 
  Country: None (occurrence: None)
  Receive Date: 20110413
  Receipt Date: 20110401
  Transmission Date: 20111010
  Serious: Yes (Hospitalization, Other)
  Sender: FDA-Public Use
  Company Number: US-TYCO HEALTHCARE/MALLINCKRODT-T200801924

PATIENT
  Sex: Female
  Weight: 107.48 kg

DRUGS (14)
  1. OPTIMARK [Suspect]
     Indication: NUCLEAR MAGNETIC RESONANCE IMAGING
     Dosage: UNK
     Dates: start: 20041005, end: 20041005
  2. ROCALTROL [Concomitant]
     Dosage: 0.5 UG, QD
  3. PREDNISONE [Concomitant]
     Dosage: 5 MG, QOD
  4. GADOLINIUM [Suspect]
     Indication: NUCLEAR MAGNETIC RESONANCE IMAGING
     Dosage: UNK
     Dates: start: 20060829, end: 20060829
  5. FLORINEF [Concomitant]
     Dosage: 0.1 MG, BID
  6. ATIVAN [Concomitant]
     Dosage: 2 MG, BID
  7. ZANTAC                             /00550802/ [Concomitant]
     Dosage: 150 MG, QD (HS)
  8. PERCOCET [Concomitant]
     Dosage: 1-2 DAILY, PRN
  9. TUMS                               /00108001/ [Concomitant]
     Dosage: 2 TABS, QD
  10. OXYCONTIN [Concomitant]
     Dosage: 40 MG, BID
  11. COLACE [Concomitant]
  12. OMNISCAN [Suspect]
     Indication: NUCLEAR MAGNETIC RESONANCE IMAGING ABDOMINAL
     Dosage: UNK
     Dates: start: 20031202, end: 20031202
  13. WARFARIN [Concomitant]
     Dosage: 3 MG, QD
  14. ZYRTEC [Concomitant]
     Dosage: 10 MG, QD PRN

REACTIONS (20)
  - OSTEOMYELITIS [None]
  - OPTIC NEURITIS [None]
  - DRY EYE [None]
  - INFECTION [None]
  - WOUND INFECTION STAPHYLOCOCCAL [None]
  - CHALAZION [None]
  - FEMORAL ARTERY OCCLUSION [None]
  - STEAL SYNDROME [None]
  - IMPAIRED HEALING [None]
  - RETINAL ARTERY OCCLUSION [None]
  - OFF LABEL USE [None]
  - GANGRENE [None]
  - NEPHROGENIC SYSTEMIC FIBROSIS [None]
  - SKIN ULCER [None]
  - CATARACT [None]
  - SMALL INTESTINAL OBSTRUCTION [None]
  - MACULOPATHY [None]
  - LIVIDITY [None]
  - CORNEAL NEOVASCULARISATION [None]
  - GASTROENTERITIS VIRAL [None]
